FAERS Safety Report 10041055 (Version 1)
Quarter: 2014Q1

REPORT INFORMATION
  Report Type: Report from Study
  Country: US (occurrence: US)
  Receive Date: 20140327
  Receipt Date: 20140327
  Transmission Date: 20141002
  Serious: Yes (Other)
  Sender: FDA-Public Use
  Company Number: US-ALEXION-A201002103

PATIENT
  Age: 35 Year
  Sex: Female

DRUGS (10)
  1. SOLIRIS [Suspect]
     Indication: PAROXYSMAL NOCTURNAL HAEMOGLOBINURIA
     Dosage: UNK
     Route: 042
     Dates: start: 20070904
  2. WARFARIN [Concomitant]
     Dosage: UNK
     Dates: start: 201004
  3. PREDNISONE [Concomitant]
     Dosage: UNK
     Dates: start: 201004
  4. DANAZOL [Concomitant]
     Dosage: UNK
     Dates: start: 201004
  5. FERROUS SULFATE [Concomitant]
     Dosage: UNK
     Dates: start: 201004
  6. B12 [Concomitant]
     Dosage: UNK
     Dates: start: 201004
  7. FOLIC ACID [Concomitant]
     Dosage: UNK
     Dates: start: 201004
  8. CALCIUM [Concomitant]
     Dosage: UNK
     Dates: start: 201004
  9. LORATADINE [Concomitant]
     Dosage: UNK
     Dates: start: 201004
  10. FAMOTIDINE [Concomitant]
     Dosage: UNK
     Dates: start: 201004

REACTIONS (1)
  - Haemoglobin decreased [Unknown]
